FAERS Safety Report 20214019 (Version 1)
Quarter: 2021Q4

REPORT INFORMATION
  Report Type: Spontaneous
  Country: US (occurrence: None)
  Receive Date: 20211221
  Receipt Date: 20211221
  Transmission Date: 20220303
  Serious: No
  Sender: FDA-Public Use
  Company Number: None

PATIENT
  Age: 61 Year
  Sex: Female

DRUGS (1)
  1. FORTEO [Suspect]
     Active Substance: TERIPARATIDE
     Indication: Senile osteoporosis
     Dosage: OTHER QUANTITY : 620 MCG/2.48ML;?FREQUENCY : DAILY;?
     Route: 058
     Dates: start: 20201231

REACTIONS (3)
  - Helicobacter infection [None]
  - Gastric cancer [None]
  - Therapy interrupted [None]

NARRATIVE: CASE EVENT DATE: 20211208
